FAERS Safety Report 7760216-3 (Version None)
Quarter: 2011Q3

REPORT INFORMATION
  Report Type: 
  Country: None (occurrence: None)
  Receive Date: 20110919
  Receipt Date: 20110913
  Transmission Date: 20111222
  Serious: Yes (Death, Hospitalization)
  Sender: FDA-Public Use
  Company Number: US-GLAXOSMITHKLINE-A0931518A

PATIENT
  Age: 53 Year
  Sex: Male

DRUGS (2)
  1. AVANDARYL [Suspect]
     Indication: DIABETES MELLITUS
     Route: 048
     Dates: start: 20061201, end: 20070529
  2. AVANDIA [Suspect]
     Indication: DIABETES MELLITUS
     Dosage: 4MG PER DAY
     Route: 048
     Dates: start: 20061116, end: 20061201

REACTIONS (4)
  - ARTERIAL OCCLUSIVE DISEASE [None]
  - HYPERTENSION [None]
  - ARTERIOSCLEROSIS [None]
  - CARDIAC ARREST [None]
